FAERS Safety Report 9312197 (Version 2)
Quarter: 2013Q2

REPORT INFORMATION
  Report Type: Report from Study
  Country: CA (occurrence: US)
  Receive Date: 20130528
  Receipt Date: 20130611
  Transmission Date: 20140414
  Serious: Yes (Other)
  Sender: FDA-Public Use
  Company Number: US-TEVA-407510USA

PATIENT
  Age: 24 Year
  Sex: Female

DRUGS (1)
  1. CLARAVIS [Suspect]
     Dosage: 1 Q AM AND 1 Q PM ALT W 1 Q AM AND 2 Q PM
     Dates: start: 20121231, end: 20130521

REACTIONS (1)
  - Unintended pregnancy [Unknown]
